FAERS Safety Report 19273783 (Version 1)
Quarter: 2021Q2

REPORT INFORMATION
  Report Type: Spontaneous
  Country: US (occurrence: US)
  Receive Date: 20210519
  Receipt Date: 20210519
  Transmission Date: 20210717
  Serious: Yes (Hospitalization)
  Sender: FDA-Public Use
  Company Number: None

PATIENT
  Age: 17 Year
  Sex: Female
  Weight: 93.2 kg

DRUGS (6)
  1. METHOTREXATE. [Suspect]
     Active Substance: METHOTREXATE
     Dates: end: 20210505
  2. VINCRISTINE SULFATE. [Suspect]
     Active Substance: VINCRISTINE SULFATE
     Dates: end: 20210512
  3. CYTARABINE. [Suspect]
     Active Substance: CYTARABINE
     Dates: end: 20210510
  4. PREDNISOLONE. [Suspect]
     Active Substance: PREDNISOLONE
     Dates: end: 20210517
  5. ONCASPAR [Suspect]
     Active Substance: PEGASPARGASE
     Dates: end: 20210501
  6. DAUNORUBICIN [Suspect]
     Active Substance: DAUNORUBICIN
     Dates: end: 20210512

REACTIONS (8)
  - Venoocclusive liver disease [None]
  - Pyrexia [None]
  - Headache [None]
  - Escherichia bacteraemia [None]
  - Hyperbilirubinaemia [None]
  - Neutropenia [None]
  - Hepatic steatosis [None]
  - Liver function test increased [None]

NARRATIVE: CASE EVENT DATE: 20210512
